FAERS Safety Report 13873805 (Version 1)
Quarter: 2017Q3

REPORT INFORMATION
  Report Type: Spontaneous
  Country: US (occurrence: US)
  Receive Date: 20170816
  Receipt Date: 20170816
  Transmission Date: 20171127
  Serious: No
  Sender: FDA-Public Use
  Company Number: US-INTERPRAG-PM-OCA2017-00491

PATIENT

DRUGS (8)
  1. OMEPRAZOLE. [Concomitant]
     Active Substance: OMEPRAZOLE
  2. CEPHALEXIN                         /00145501/ [Concomitant]
     Active Substance: CEPHALEXIN
  3. ZINC SULFATE [Concomitant]
     Active Substance: ZINC SULFATE\ZINC SULFATE ANHYDROUS
  4. URSODIOL. [Concomitant]
     Active Substance: URSODIOL
  5. ZOLPIDEM [Concomitant]
     Active Substance: ZOLPIDEM\ZOLPIDEM TARTRATE
  6. OCALIVA [Suspect]
     Active Substance: OBETICHOLIC ACID
     Indication: BILIARY CIRRHOSIS PRIMARY
     Dosage: 5 MG, QD
     Route: 048
     Dates: start: 20170510
  7. CALCIUM [Concomitant]
     Active Substance: CALCIUM
  8. MULTIVITAMINS, PLAIN [Concomitant]
     Active Substance: VITAMINS

REACTIONS (2)
  - Pruritus [Unknown]
  - Abdominal pain upper [Unknown]
